FAERS Safety Report 15940024 (Version 1)
Quarter: 2019Q1

REPORT INFORMATION
  Report Type: Spontaneous
  Country: JP (occurrence: JP)
  Receive Date: 20190208
  Receipt Date: 20190208
  Transmission Date: 20190417
  Serious: Yes (Other)
  Sender: FDA-Public Use
  Company Number: JP-PFIZER INC-2019048938

PATIENT

DRUGS (1)
  1. EFFEXOR [Suspect]
     Active Substance: VENLAFAXINE HYDROCHLORIDE
     Dosage: 2 DF, DAILY AFTER SUPPER
     Route: 048

REACTIONS (4)
  - Product size issue [Unknown]
  - Intentional product misuse [Unknown]
  - Choking [Unknown]
  - Product use complaint [Unknown]
